FAERS Safety Report 11878569 (Version 1)
Quarter: 2015Q4

REPORT INFORMATION
  Report Type: Spontaneous
  Country: US (occurrence: None)
  Receive Date: 20151229
  Receipt Date: 20151229
  Transmission Date: 20160305
  Serious: Yes (Life-Threatening, Disabling)
  Sender: FDA-Public Use
  Company Number: None

PATIENT
  Age: 41 Year
  Sex: Female
  Weight: 78.02 kg

DRUGS (1)
  1. LOESTRIN FE 1/20 28 DAY [Suspect]
     Active Substance: ETHINYL ESTRADIOL\NORETHINDRONE ACETATE
     Indication: PREMATURE MENOPAUSE
     Route: 048
     Dates: start: 20150815, end: 20151106

REACTIONS (2)
  - Heart rate irregular [None]
  - Blood pressure increased [None]

NARRATIVE: CASE EVENT DATE: 20151022
